FAERS Safety Report 10216743 (Version 1)
Quarter: 2014Q2

REPORT INFORMATION
  Report Type: Spontaneous
  Country: AU (occurrence: AU)
  Receive Date: 20140604
  Receipt Date: 20140604
  Transmission Date: 20141212
  Serious: Yes (Hospitalization)
  Sender: FDA-Public Use
  Company Number: AU-PFIZER INC-2014150771

PATIENT
  Age: 80 Year
  Sex: Male

DRUGS (1)
  1. SUTENT [Suspect]
     Indication: PANCREATIC NEUROENDOCRINE TUMOUR
     Dosage: 25 MG, DAILY
     Route: 048

REACTIONS (2)
  - Urinary tract infection [Recovered/Resolved]
  - Malaise [Recovered/Resolved]
